FAERS Safety Report 13656089 (Version 2)
Quarter: 2017Q3

REPORT INFORMATION
  Report Type: Spontaneous
  Country: MX (occurrence: MX)
  Receive Date: 20170615
  Receipt Date: 20170829
  Transmission Date: 20171127
  Serious: Yes (Hospitalization, Other)
  Sender: FDA-Public Use
  Company Number: MX-AUROBINDO-AUR-APL-2017-35265

PATIENT
  Age: 67 Year
  Sex: Female

DRUGS (9)
  1. DESVENLAFAXINE. [Interacting]
     Active Substance: DESVENLAFAXINE
     Indication: DEPRESSION
     Dosage: 50 MG, UNK
     Route: 065
  2. QUETIAPINE FUMARATE 300MG [Interacting]
     Active Substance: QUETIAPINE FUMARATE
     Indication: DEPRESSION
     Dosage: 300 MG, UNK
     Route: 065
  3. DESVENLAFAXINE. [Interacting]
     Active Substance: DESVENLAFAXINE
  4. PIRACETAM [Concomitant]
     Active Substance: PIRACETAM
     Indication: DEPRESSION
     Dosage: UNK
     Route: 065
  5. ATORVASTATIN [Concomitant]
     Active Substance: ATORVASTATIN
     Indication: DYSLIPIDAEMIA
     Dosage: 10 MG, UNK
  6. LEVETIRACETAM 500MG [Suspect]
     Active Substance: LEVETIRACETAM
     Indication: DEPRESSION
     Dosage: 500 MG, TWO TIMES A DAY
     Route: 065
  7. NIFEDIPINE. [Interacting]
     Active Substance: NIFEDIPINE
     Dosage: 20 MG, 3 TIMES A DAY
     Route: 065
  8. RALOXIFENE. [Concomitant]
     Active Substance: RALOXIFENE
     Indication: DEPRESSION
     Dosage: 60 MG, UNK
     Route: 065
  9. RALOXIFENE. [Concomitant]
     Active Substance: RALOXIFENE

REACTIONS (3)
  - Large intestine perforation [Recovered/Resolved]
  - Drug interaction [Recovered/Resolved]
  - Intestinal pseudo-obstruction [Recovered/Resolved]
